FAERS Safety Report 26147654 (Version 1)
Quarter: 2025Q4

REPORT INFORMATION
  Report Type: Spontaneous
  Country: CN (occurrence: CN)
  Receive Date: 20251211
  Receipt Date: 20251211
  Transmission Date: 20260118
  Serious: Yes (Other)
  Sender: ABBVIE
  Company Number: CN-ABBVIE-6584633

PATIENT
  Age: 46 Year
  Sex: Female

DRUGS (2)
  1. BOTOX [Suspect]
     Active Substance: ONABOTULINUMTOXINA
     Indication: Skin wrinkling
     Dosage: TIME INTERVAL: AS NECESSARY: TOTAL DOSE: 50 INTERNATIONAL UNIT, FREQUENCY: EVERY 365 DAYS
     Route: 058
     Dates: start: 20251012, end: 20251012
  2. BOTOX [Suspect]
     Active Substance: ONABOTULINUMTOXINA
     Indication: Skin wrinkling
     Dosage: TIME INTERVAL: AS NECESSARY: TOTAL DOSE: 50 INTERNATIONAL UNIT, FREQUENCY: EVERY 365 DAYS
     Route: 058
     Dates: start: 20251012, end: 20251012

REACTIONS (3)
  - Botulism [Recovering/Resolving]
  - Hypoaesthesia [Not Recovered/Not Resolved]
  - Chest discomfort [Not Recovered/Not Resolved]

NARRATIVE: CASE EVENT DATE: 20251013
